FAERS Safety Report 17619263 (Version 1)
Quarter: 2020Q2

REPORT INFORMATION
  Report Type: Spontaneous
  Country: DE (occurrence: DE)
  Receive Date: 20200402
  Receipt Date: 20200402
  Transmission Date: 20200713
  Serious: Yes (Hospitalization)
  Sender: FDA-Public Use
  Company Number: DE-ASTRAZENECA-2020SE46064

PATIENT
  Age: 9 Month
  Sex: Male

DRUGS (2)
  1. SYNAGIS [Suspect]
     Active Substance: PALIVIZUMAB
     Indication: PREMATURE BABY
     Dosage: 50 MG/100MG, 15MG/KG
     Route: 030
  2. SYNAGIS [Suspect]
     Active Substance: PALIVIZUMAB
     Indication: PREMATURE BABY
     Dosage: 50 MG/100MG, 15MG/KG
     Route: 030
     Dates: start: 20191002

REACTIONS (1)
  - Bronchitis pneumococcal [Recovered/Resolved]

NARRATIVE: CASE EVENT DATE: 20200308
